FAERS Safety Report 8395416-5 (Version None)
Quarter: 2012Q1

REPORT INFORMATION
  Report Type: 
  Country: None (occurrence: None)
  Receive Date: 20120323
  Receipt Date: 20110325
  Transmission Date: 20120608
  Serious: Yes (Disabling, Other)
  Sender: FDA-Public Use
  Company Number: 163-21880-11033497

PATIENT
  Age: 71 Year
  Sex: Female
  Weight: 83 kg

DRUGS (2)
  1. REVLIMID [Suspect]
     Indication: MULTIPLE MYELOMA
     Dosage: 15 MG, 1 IN 1 D, PO
     Route: 048
     Dates: start: 20100115, end: 20101201
  2. IRON (IRON) (UNKNOWN) [Suspect]
     Indication: SUPPLEMENTATION THERAPY

REACTIONS (3)
  - MELAENA [None]
  - SWELLING [None]
  - PARAESTHESIA [None]
